FAERS Safety Report 12209654 (Version 1)
Quarter: 2016Q1

REPORT INFORMATION
  Report Type: Spontaneous
  Country: US (occurrence: US)
  Receive Date: 20160325
  Receipt Date: 20160325
  Transmission Date: 20160526
  Serious: No
  Sender: FDA-Public Use
  Company Number: US-AMGEN-USASP2016035323

PATIENT
  Age: 38 Year
  Sex: Male

DRUGS (3)
  1. CELECOXIB. [Concomitant]
     Active Substance: CELECOXIB
     Dosage: UNK
  2. PREDNISONE. [Concomitant]
     Active Substance: PREDNISONE
     Dosage: UNK
  3. ENBREL [Suspect]
     Active Substance: ETANERCEPT
     Indication: PSORIATIC ARTHROPATHY
     Dosage: 50 MG, QWK
     Route: 058
     Dates: start: 20160309

REACTIONS (3)
  - Injection site pruritus [Unknown]
  - Injection site erythema [Unknown]
  - Injection site rash [Recovered/Resolved]

NARRATIVE: CASE EVENT DATE: 201603
